FAERS Safety Report 6093592-0 (Version None)
Quarter: 2009Q1

REPORT INFORMATION
  Report Type: 
  Country: None (occurrence: None)
  Receive Date: 20090224
  Receipt Date: 20090202
  Transmission Date: 20090719
  Serious: Yes (Hospitalization)
  Sender: FDA-Public Use
  Company Number: 2009-0119

PATIENT
  Age: 40 Year
  Sex: Male

DRUGS (2)
  1. SOMATULINE AUTOGEL 90MG (LANREOTIDE ACETATE) (LANREOTIDE ACETATE) [Suspect]
     Dosage: (90 MG)
  2. T. CREAON [Concomitant]

REACTIONS (1)
  - CHOLECYSTITIS ACUTE [None]
